FAERS Safety Report 4516992-6 (Version None)
Quarter: 2004Q4

REPORT INFORMATION
  Report Type: 
  Country: None (occurrence: None)
  Receive Date: 20041130
  Receipt Date: 20041118
  Transmission Date: 20050328
  Serious: Yes (Hospitalization, Other)
  Sender: FDA-Public Use
  Company Number: A-CH2004-05426

PATIENT
  Age: 53 Year
  Sex: Female

DRUGS (3)
  1. TRACLEER [Suspect]
     Indication: PULMONARY HYPERTENSION
     Dates: start: 20030501
  2. ZIAGEN [Suspect]
  3. ANTICOAGULANTS [Concomitant]

REACTIONS (17)
  - ALANINE AMINOTRANSFERASE INCREASED [None]
  - ANAEMIA [None]
  - ASPARTATE AMINOTRANSFERASE INCREASED [None]
  - ASTHMA [None]
  - BLOOD ALKALINE PHOSPHATASE INCREASED [None]
  - BLOOD LACTIC ACID INCREASED [None]
  - BRONCHIAL INFECTION [None]
  - CATHETER RELATED INFECTION [None]
  - DRUG INTERACTION [None]
  - ENTEROBACTER INFECTION [None]
  - EPISTAXIS [None]
  - HAEMOPTYSIS [None]
  - MYOPATHY [None]
  - OEDEMA PERIPHERAL [None]
  - PERICARDIAL EFFUSION [None]
  - PSEUDOMONAL SEPSIS [None]
  - PULMONARY HYPERTENSION [None]
